FAERS Safety Report 4588552-2 (Version None)
Quarter: 2005Q1

REPORT INFORMATION
  Report Type: 
  Country: None (occurrence: None)
  Receive Date: 20050216
  Receipt Date: 20050216
  Transmission Date: 20050727
  Serious: Yes (Hospitalization)
  Sender: FDA-Public Use
  Company Number: None

PATIENT
  Age: 75 Year
  Sex: Male
  Weight: 67 kg

DRUGS (10)
  1. COUMADIN [Suspect]
     Indication: AORTIC VALVE REPLACEMENT
     Dosage: 2.5MG/1.25MG   QMON/ROW   ORAL
     Route: 048
     Dates: start: 19940801, end: 20050101
  2. COUMADIN [Suspect]
     Indication: ATRIAL FLUTTER
     Dosage: 2.5MG/1.25MG   QMON/ROW   ORAL
     Route: 048
     Dates: start: 19940801, end: 20050101
  3. COUMADIN [Suspect]
     Indication: CORONARY ARTERY DISEASE
     Dosage: 2.5MG/1.25MG   QMON/ROW   ORAL
     Route: 048
     Dates: start: 19940801, end: 20050101
  4. SIMVASTATIN [Concomitant]
  5. TEMAZEPAM [Concomitant]
  6. TRAMADOL HCL [Concomitant]
  7. AMIODARONE HCL [Concomitant]
  8. LISINOPRIL [Concomitant]
  9. OMEPRAZOLE [Concomitant]
  10. NITROGLYCERIN [Concomitant]

REACTIONS (2)
  - APHASIA [None]
  - CEREBROVASCULAR ACCIDENT [None]
